FAERS Safety Report 16391231 (Version 1)
Quarter: 2019Q2

REPORT INFORMATION
  Report Type: Spontaneous
  Country: US (occurrence: US)
  Receive Date: 20190604
  Receipt Date: 20190604
  Transmission Date: 20190711
  Serious: No
  Sender: FDA-Public Use
  Company Number: US-GLAXOSMITHKLINE-US2019GSK066633

PATIENT
  Sex: Female

DRUGS (1)
  1. ALBUTEROL SULFATE INHALATION POWDER [Suspect]
     Active Substance: ALBUTEROL SULFATE
     Dosage: 90UGUNK, PRN
     Route: 055

REACTIONS (4)
  - Product dose omission [Unknown]
  - Product tampering [Unknown]
  - Wrong technique in device usage process [Unknown]
  - Product label confusion [Unknown]
